FAERS Safety Report 13858189 (Version 1)
Quarter: 2017Q3

REPORT INFORMATION
  Report Type: Report from Study
  Country: None (occurrence: US)
  Receive Date: 20170811
  Receipt Date: 20170811
  Transmission Date: 20171127
  Serious: Yes (Other)
  Sender: FDA-Public Use
  Company Number: US-ABBVIE-17K-163-2063754-00

PATIENT
  Sex: Female

DRUGS (1)
  1. HUMIRA [Suspect]
     Active Substance: ADALIMUMAB
     Indication: PSORIASIS
     Route: 058
     Dates: start: 20170421

REACTIONS (3)
  - Hyperaesthesia [Recovering/Resolving]
  - Precancerous skin lesion [Recovering/Resolving]
  - Dermal cyst [Recovering/Resolving]

NARRATIVE: CASE EVENT DATE: 2017
